FAERS Safety Report 5296499-1 (Version None)
Quarter: 2007Q2

REPORT INFORMATION
  Report Type: 
  Country: None (occurrence: None)
  Receive Date: 20070413
  Receipt Date: 20070403
  Transmission Date: 20071010
  Serious: Yes (Hospitalization)
  Sender: FDA-Public Use
  Company Number: US-PFIZER INC-2005148678

PATIENT
  Sex: Female
  Weight: 57.2 kg

DRUGS (14)
  1. SUTENT [Suspect]
     Indication: RENAL CELL CARCINOMA STAGE UNSPECIFIED
     Route: 048
     Dates: start: 20050722, end: 20051023
  2. SYNTHROID [Concomitant]
     Indication: HYPOTHYROIDISM
     Dosage: TEXT:UNKNOWN
     Route: 048
  3. LORAZEPAM [Concomitant]
     Indication: ANXIETY
     Route: 048
  4. LIDOCAINE [Concomitant]
     Indication: HAEMORRHOIDS
     Route: 061
  5. XYLOCAINE [Concomitant]
     Indication: HAEMORRHOIDS
     Route: 061
  6. ANUSOL [Concomitant]
     Indication: HAEMORRHOIDS
     Route: 054
  7. COMPAZINE [Concomitant]
     Route: 048
  8. KYTRIL [Concomitant]
     Route: 048
  9. SENNA [Concomitant]
     Route: 048
  10. TYLENOL [Concomitant]
     Route: 048
  11. PEPCID [Concomitant]
     Route: 048
  12. DARVOCET-N 100 [Concomitant]
     Indication: PAIN
     Route: 048
  13. NORVASC [Concomitant]
     Indication: HYPERTENSION
     Route: 048
  14. NASACORT AQ [Concomitant]
     Indication: SINUSITIS
     Route: 045

REACTIONS (1)
  - ABDOMINAL ABSCESS [None]
